FAERS Safety Report 7773569-7 (Version None)
Quarter: 2011Q3

REPORT INFORMATION
  Report Type: 
  Country: None (occurrence: None)
  Receive Date: 20110923
  Receipt Date: 20110914
  Transmission Date: 20111222
  Serious: Yes (Other)
  Sender: FDA-Public Use
  Company Number: IT-PAR PHARMACEUTICAL, INC-2011SCPR003215

PATIENT

DRUGS (11)
  1. THALIDOMIDE [Suspect]
     Indication: AMYLOIDOSIS
     Dosage: 100 MG, ON DAYS 1 TO 21
     Route: 048
  2. DEXAMETHASONE [Suspect]
     Indication: MULTIPLE MYELOMA
     Dosage: 40 MG ON DAYS 1 TO 4 EVERY 28 DAYS
     Route: 048
  3. SPIRONOLACTONE [Concomitant]
     Indication: DIURETIC THERAPY
     Dosage: UNK, UNKNOWN
     Route: 065
  4. MELPHALAN HYDROCHLORIDE [Concomitant]
     Indication: AMYLOIDOSIS
     Dosage: 0.22 MG/KG, UNKNOWN
     Route: 048
  5. ATORVASTATIN [Concomitant]
     Indication: PRODUCT USED FOR UNKNOWN INDICATION
     Dosage: UNK, UNKNOWN
     Route: 065
  6. ASPIRIN [Concomitant]
     Indication: THROMBOSIS PROPHYLAXIS
     Dosage: 100 MG/DAY
     Route: 065
  7. MELPHALAN HYDROCHLORIDE [Concomitant]
     Indication: MULTIPLE MYELOMA
  8. DEXAMETHASONE [Suspect]
     Indication: AMYLOIDOSIS
     Dosage: 4-DAY PULSES OF 20 MG/DAY, TWICE A COURSE, EVERY 28 DAYS
     Route: 048
  9. FUROSEMIDE [Concomitant]
     Indication: DIURETIC THERAPY
     Dosage: UNK, UNKNOWN
     Route: 065
  10. ENALAPRIL MALEATE [Concomitant]
     Indication: PRODUCT USED FOR UNKNOWN INDICATION
     Dosage: UNK, UNKNOWN
     Route: 065
  11. THALIDOMIDE [Suspect]
     Indication: MULTIPLE MYELOMA

REACTIONS (7)
  - COGNITIVE DISORDER [None]
  - TOXICITY TO VARIOUS AGENTS [None]
  - FATIGUE [None]
  - FLUID RETENTION [None]
  - CONSTIPATION [None]
  - ACUTE MYOCARDIAL INFARCTION [None]
  - DYSPNOEA EXERTIONAL [None]
